FAERS Safety Report 24646751 (Version 1)
Quarter: 2024Q4

REPORT INFORMATION
  Report Type: Spontaneous
  Country: US (occurrence: None)
  Receive Date: 20241120
  Receipt Date: 20241120
  Transmission Date: 20250115
  Serious: Yes (Death)
  Sender: Public
  Company Number: None

PATIENT
  Age: 65 Year
  Sex: Female

DRUGS (1)
  1. LENALIDOMIDE [Suspect]
     Active Substance: LENALIDOMIDE
     Indication: Hodgkin^s disease
     Dosage: 25MG QD ORAL
     Route: 048
     Dates: start: 20241009, end: 20241019

REACTIONS (2)
  - Transfusion [None]
  - Platelet transfusion [None]

NARRATIVE: CASE EVENT DATE: 20241019
